FAERS Safety Report 5799034-4 (Version None)
Quarter: 2008Q3

REPORT INFORMATION
  Report Type: 
  Country: None (occurrence: None)
  Receive Date: 20080702
  Receipt Date: 20080522
  Transmission Date: 20090109
  Serious: No
  Sender: FDA-Public Use
  Company Number: US-BRISTOL-MYERS SQUIBB COMPANY-14201487

PATIENT
  Age: 79 Year
  Sex: Female

DRUGS (1)
  1. SPRYCEL [Suspect]

REACTIONS (2)
  - DRUG INEFFECTIVE [None]
  - PLEURAL EFFUSION [None]
